FAERS Safety Report 8417954 (Version 3)
Quarter: 2012Q4

REPORT INFORMATION
  Report Type: 
  Country: US (occurrence: US)
  Receive Date: 20120221
  Receipt Date: 20121030
  Transmission Date: 20130627
  Serious: Yes (Other)
  Sender: FDA-Public Use
  Company Number: US-US-EMD SERONO, INC.-7113149

PATIENT
  Age: 49 None
  Sex: Female
  Weight: 117 kg

DRUGS (1)
  1. REBIF [Suspect]
     Indication: MULTIPLE SCLEROSIS
     Route: 058
     Dates: start: 20101206

REACTIONS (2)
  - Bronchitis [Recovered/Resolved]
  - Multiple sclerosis relapse [Recovered/Resolved]
